FAERS Safety Report 14133202 (Version 2)
Quarter: 2017Q4

REPORT INFORMATION
  Report Type: Spontaneous
  Country: TW (occurrence: TW)
  Receive Date: 20171026
  Receipt Date: 20171107
  Transmission Date: 20180321
  Serious: Yes (Death, Other)
  Sender: FDA-Public Use
  Company Number: TW-BRISTOL-MYERS SQUIBB COMPANY-BMS-2017-094419

PATIENT
  Age: 65 Year
  Sex: Male

DRUGS (1)
  1. OPDIVO [Suspect]
     Active Substance: NIVOLUMAB
     Indication: OESOPHAGEAL SQUAMOUS CELL CARCINOMA
     Dosage: 3 MG/KG, Q2WK
     Route: 042
     Dates: start: 20171003

REACTIONS (7)
  - Apnoea [Unknown]
  - Pleural effusion [Unknown]
  - Arthralgia [Unknown]
  - Product use in unapproved indication [Unknown]
  - Coma [Unknown]
  - Bradycardia [Unknown]
  - Sepsis [Fatal]

NARRATIVE: CASE EVENT DATE: 20171101
